FAERS Safety Report 5583205-6 (Version None)
Quarter: 2008Q1

REPORT INFORMATION
  Report Type: 
  Country: None (occurrence: None)
  Receive Date: 20080107
  Receipt Date: 20071226
  Transmission Date: 20080703
  Serious: Yes (Hospitalization, Disabling)
  Sender: FDA-Public Use
  Company Number: JP-SANOFI-SYNTHELABO-F01200701746

PATIENT
  Sex: Male
  Weight: 68.4 kg

DRUGS (7)
  1. ADALAT [Concomitant]
     Indication: HYPERTENSION
     Dosage: 20 MG
     Route: 048
     Dates: start: 20071011
  2. ADALAT [Concomitant]
     Indication: HYPERTENSION
     Dosage: 60 MG
     Route: 048
     Dates: start: 20060609, end: 20070326
  3. OLMETEC [Concomitant]
     Indication: HYPERTENSION
     Dosage: 40 MG
     Route: 048
     Dates: start: 20050708
  4. LONGES [Concomitant]
     Indication: HYPERTENSION
     Dosage: 20 MG
     Route: 048
     Dates: start: 20050520
  5. SELOKEN [Concomitant]
     Indication: HYPERTENSION
     Dosage: 120 MG
     Route: 048
  6. CLOPIDOGREL [Suspect]
     Indication: LACUNAR INFARCTION
     Dosage: 50 MG
     Route: 048
     Dates: start: 20060927, end: 20070226
  7. CLOPIDOGREL [Suspect]
     Dosage: 50 MG
     Route: 048
     Dates: start: 20070326

REACTIONS (2)
  - HYPERTENSION [None]
  - RENAL FAILURE CHRONIC [None]
